FAERS Safety Report 10249529 (Version 1)
Quarter: 2014Q2

REPORT INFORMATION
  Report Type: Spontaneous
  Country: US (occurrence: None)
  Receive Date: 20140618
  Receipt Date: 20140618
  Transmission Date: 20141212
  Serious: No
  Sender: FDA-Public Use
  Company Number: CC14-0701

PATIENT
  Age: 89 Year
  Sex: Female

DRUGS (1)
  1. METRONIDAZOLE TOPICAL GEL [Suspect]
     Dates: start: 20140308, end: 20140412

REACTIONS (1)
  - Burning sensation [None]
